FAERS Safety Report 24994149 (Version 2)
Quarter: 2025Q1

REPORT INFORMATION
  Report Type: Spontaneous
  Country: IT (occurrence: IT)
  Receive Date: 20250221
  Receipt Date: 20250310
  Transmission Date: 20250409
  Serious: Yes (Life-Threatening, Hospitalization, Other)
  Sender: AUROBINDO
  Company Number: IT-MINISAL02-1023559

PATIENT
  Age: 36 Year
  Sex: Male

DRUGS (4)
  1. QUETIAPINE [Suspect]
     Active Substance: QUETIAPINE
     Indication: Product used for unknown indication
     Dosage: 2400 MILLIGRAM, ONCE A DAY [24 COMPRESSE DA 100 MG]
     Route: 048
     Dates: start: 20240912, end: 20240912
  2. PAROXETINE [Suspect]
     Active Substance: PAROXETINE
     Indication: Product used for unknown indication
     Dosage: 100 MILLIGRAM, ONCE A DAY [5 COMPRESSE DA 20 MG]
     Route: 048
     Dates: start: 20240912, end: 20240912
  3. LITHIUM CARBONATE [Suspect]
     Active Substance: LITHIUM CARBONATE
     Indication: Product used for unknown indication
     Dosage: 3000 MILLIGRAM, ONCE A DAY [10 CAPSULE DA 300 MG]
     Route: 048
     Dates: start: 20240912, end: 20240912
  4. VALPROATE SODIUM [Suspect]
     Active Substance: VALPROATE SODIUM
     Indication: Product used for unknown indication
     Dosage: 2500 MILLIGRAM, ONCE A DAY [5 COMPRESSE DA 500 MG]
     Route: 048
     Dates: start: 20240912, end: 20240912

REACTIONS (3)
  - Drug abuse [Recovered/Resolved]
  - Intentional self-injury [Recovered/Resolved]
  - Sopor [Recovered/Resolved]

NARRATIVE: CASE EVENT DATE: 20240913
